FAERS Safety Report 6381933-6 (Version None)
Quarter: 2009Q3

REPORT INFORMATION
  Report Type: 
  Country: None (occurrence: None)
  Receive Date: 20090930
  Receipt Date: 20090921
  Transmission Date: 20100115
  Serious: Yes (Other)
  Sender: FDA-Public Use
  Company Number: US-ROCHE-649339

PATIENT
  Sex: Female

DRUGS (4)
  1. TAMIFLU [Suspect]
     Indication: PROPHYLAXIS
     Route: 048
  2. ZYRTEC [Concomitant]
  3. VALTREX [Concomitant]
  4. INSULIN [Concomitant]

REACTIONS (1)
  - HYPERGLYCAEMIA [None]
